FAERS Safety Report 23754573 (Version 1)
Quarter: 2024Q2

REPORT INFORMATION
  Report Type: Spontaneous
  Country: CN (occurrence: CN)
  Receive Date: 20240418
  Receipt Date: 20240418
  Transmission Date: 20240715
  Serious: Yes (Life-Threatening, Other)
  Sender: FDA-Public Use
  Company Number: CN-Y-MABS THERAPEUTICS, INC.-SPO2024-CN-001536

PATIENT

DRUGS (1)
  1. DANYELZA [Suspect]
     Active Substance: NAXITAMAB-GQGK
     Indication: Neuroblastoma
     Dosage: UNKNOWN CYCLE, UNKNOWN DOSE
     Route: 042
     Dates: start: 20240328, end: 20240328

REACTIONS (7)
  - Anaphylactic shock [Unknown]
  - Dysphoria [Unknown]
  - Abdominal pain [Unknown]
  - Peripheral coldness [Unknown]
  - Blood pressure decreased [Recovered/Resolved]
  - Arrhythmia [Recovered/Resolved]
  - Metabolic alkalosis [Unknown]

NARRATIVE: CASE EVENT DATE: 20240328
